FAERS Safety Report 17608002 (Version 1)
Quarter: 2020Q1

REPORT INFORMATION
  Report Type: Spontaneous
  Country: AR (occurrence: AR)
  Receive Date: 20200331
  Receipt Date: 20200331
  Transmission Date: 20200409
  Serious: Yes (Death)
  Sender: FDA-Public Use
  Company Number: AR-CELGENEUS-ARG-20200310403

PATIENT
  Age: 73 Year
  Sex: Male
  Weight: 56 kg

DRUGS (1)
  1. ABRAXANE [Suspect]
     Active Substance: PACLITAXEL
     Indication: PANCREATIC CARCINOMA
     Dosage: 600 MILLIGRAM
     Route: 041
     Dates: start: 20190320

REACTIONS (1)
  - Death [Fatal]

NARRATIVE: CASE EVENT DATE: 20200102
